FAERS Safety Report 16896396 (Version 2)
Quarter: 2019Q4

REPORT INFORMATION
  Report Type: Report from Study
  Country: US (occurrence: US)
  Receive Date: 20191008
  Receipt Date: 20191025
  Transmission Date: 20200122
  Serious: Yes (Hospitalization)
  Sender: FDA-Public Use
  Company Number: US-EISAI MEDICAL RESEARCH-EC-2019-057368

PATIENT
  Age: 85 Year
  Sex: Female
  Weight: 62 kg

DRUGS (14)
  1. TYLENOL [Concomitant]
     Active Substance: ACETAMINOPHEN
  2. METFORMIN ER [Concomitant]
     Active Substance: METFORMIN HYDROCHLORIDE
  3. ASPIRIN. [Concomitant]
     Active Substance: ASPIRIN
  4. ATORVASTATIN [Concomitant]
     Active Substance: ATORVASTATIN
  5. LENVIMA [Suspect]
     Active Substance: LENVATINIB
     Route: 048
     Dates: start: 2019, end: 201910
  6. LOSARTAN. [Concomitant]
     Active Substance: LOSARTAN
  7. VITAMIN D3 [Concomitant]
     Active Substance: CHOLECALCIFEROL
  8. LENVIMA [Suspect]
     Active Substance: LENVATINIB
     Dosage: DOSE REDUCED
     Route: 048
     Dates: start: 201910, end: 201910
  9. LEVOTHYROXINE. [Concomitant]
     Active Substance: LEVOTHYROXINE
  10. ALENDRONATE SODIUM. [Concomitant]
     Active Substance: ALENDRONATE SODIUM
  11. AMLODIPINE [Concomitant]
     Active Substance: AMLODIPINE BESYLATE
  12. RANITIDINE. [Concomitant]
     Active Substance: RANITIDINE
  13. LENVIMA [Suspect]
     Active Substance: LENVATINIB
     Indication: PAPILLARY THYROID CANCER
     Route: 048
     Dates: start: 20190528, end: 20190630
  14. METOPROLOL. [Concomitant]
     Active Substance: METOPROLOL

REACTIONS (15)
  - Acute kidney injury [Recovered/Resolved]
  - Blood pressure increased [Recovering/Resolving]
  - Abdominal pain upper [Unknown]
  - Asthenia [Recovered/Resolved]
  - Balance disorder [Unknown]
  - Oral discomfort [Not Recovered/Not Resolved]
  - Pain [Recovering/Resolving]
  - Decreased appetite [Recovered/Resolved]
  - Headache [Recovering/Resolving]
  - Dehydration [Recovered/Resolved]
  - Dysphagia [Unknown]
  - Asthenia [Unknown]
  - Tongue discomfort [Not Recovered/Not Resolved]
  - Glossitis [Recovered/Resolved]
  - Stomatitis [Recovered/Resolved]

NARRATIVE: CASE EVENT DATE: 2019
